FAERS Safety Report 9398876 (Version 1)
Quarter: 2013Q3

REPORT INFORMATION
  Report Type: Spontaneous
  Country: FR (occurrence: FR)
  Receive Date: 20130712
  Receipt Date: 20130712
  Transmission Date: 20140515
  Serious: Yes (Hospitalization)
  Sender: FDA-Public Use
  Company Number: FR-ASTRAZENECA-2013SE50637

PATIENT
  Age: 31223 Day
  Sex: Female

DRUGS (7)
  1. CRESTOR [Suspect]
     Indication: CARDIOVASCULAR EVENT PROPHYLAXIS
     Route: 048
     Dates: end: 20130529
  2. ALDACTONE [Suspect]
     Indication: HYPERTENSION
     Route: 048
     Dates: end: 20130529
  3. ADENURIC [Suspect]
     Route: 048
     Dates: end: 20130529
  4. ODRIK [Suspect]
     Indication: HYPERTENSION
     Route: 048
     Dates: end: 20130529
  5. LEVOTHYROX [Concomitant]
  6. DIFFUK [Concomitant]
  7. KARDEGIC [Concomitant]

REACTIONS (2)
  - Renal failure acute [Not Recovered/Not Resolved]
  - Pancreatitis acute [Recovering/Resolving]
